FAERS Safety Report 7956603-0 (Version None)
Quarter: 2011Q4

REPORT INFORMATION
  Report Type: 
  Country: None (occurrence: None)
  Receive Date: 20111205
  Receipt Date: 20111123
  Transmission Date: 20120403
  Serious: Yes (Other)
  Sender: FDA-Public Use
  Company Number: US-JNJFOC-20111111799

PATIENT
  Age: 90 Year
  Sex: Female
  Weight: 55.34 kg

DRUGS (7)
  1. BENGAY VANISHING [Suspect]
     Indication: PAIN IN EXTREMITY
     Dosage: ^ABOUT THE SIZE OF A DIME^
     Route: 061
  2. BENGAY ULTRA STRENGTH PATCH [Suspect]
     Indication: NECK PAIN
     Route: 061
     Dates: end: 20111101
  3. BENGAY VANISHING [Suspect]
     Indication: NECK PAIN
     Dosage: ^ABOUT THE SIZE OF A DIME^
     Route: 061
  4. BENGAY VANISHING [Suspect]
     Indication: MUSCULOSKELETAL PAIN
     Dosage: ^ABOUT THE SIZE OF A DIME^
     Route: 061
  5. BENGAY ULTRA STRENGTH PATCH [Suspect]
     Indication: MUSCULOSKELETAL PAIN
     Route: 061
     Dates: end: 20111101
  6. BENGAY ULTRA STRENGTH PATCH [Suspect]
     Indication: PAIN IN EXTREMITY
     Route: 061
     Dates: end: 20111101
  7. ZETIA [Concomitant]
     Indication: BLOOD CHOLESTEROL INCREASED
     Route: 065

REACTIONS (1)
  - BLOOD PRESSURE INCREASED [None]
